FAERS Safety Report 9714279 (Version 3)
Quarter: 2015Q3

REPORT INFORMATION
  Report Type: Spontaneous
  Country: US (occurrence: US)
  Receive Date: 20131126
  Receipt Date: 20150803
  Transmission Date: 20151125
  Serious: No
  Sender: FDA-Public Use
  Company Number: US-GILEAD-2008-0018867

PATIENT
  Age: 79 Year
  Sex: Male
  Weight: 91.17 kg

DRUGS (8)
  1. PREVACID [Concomitant]
     Active Substance: LANSOPRAZOLE
  2. REVATIO [Concomitant]
     Active Substance: SILDENAFIL CITRATE
  3. LETAIRIS [Suspect]
     Active Substance: AMBRISENTAN
     Indication: PULMONARY ARTERIAL HYPERTENSION
     Route: 048
     Dates: start: 20080821, end: 20081112
  4. ALLOPURINOL. [Concomitant]
     Active Substance: ALLOPURINOL
  5. LASIX [Concomitant]
     Active Substance: FUROSEMIDE
  6. FOSINOPRIL [Concomitant]
     Active Substance: FOSINOPRIL
  7. METOPROLOL [Concomitant]
     Active Substance: METOPROLOL
  8. SYNTHROID [Concomitant]
     Active Substance: LEVOTHYROXINE SODIUM

REACTIONS (1)
  - Pruritus [Recovered/Resolved]

NARRATIVE: CASE EVENT DATE: 20080906
